FAERS Safety Report 12355700 (Version 1)
Quarter: 2016Q2

REPORT INFORMATION
  Report Type: Spontaneous
  Country: US (occurrence: None)
  Receive Date: 20160510
  Receipt Date: 20160510
  Transmission Date: 20160815
  Serious: Yes (Other)
  Sender: FDA-Public Use
  Company Number: None

PATIENT
  Age: 50 Year
  Sex: Female
  Weight: 102.06 kg

DRUGS (8)
  1. VENLAFAXINE HCL [Suspect]
     Active Substance: VENLAFAXINE HYDROCHLORIDE
     Indication: BIPOLAR DISORDER
     Route: 048
     Dates: start: 20070502
  2. EFFEXOR [Concomitant]
     Active Substance: VENLAFAXINE HYDROCHLORIDE
  3. CONCORDANT [Concomitant]
  4. CITRIZINE [Concomitant]
  5. VITAMINS [Concomitant]
     Active Substance: VITAMINS
  6. GLUCOSAMINE [Concomitant]
     Active Substance: GLUCOSAMINE
  7. GABAPENTIN. [Concomitant]
     Active Substance: GABAPENTIN
  8. LAMOTRAGINE [Concomitant]
     Active Substance: LAMOTRIGINE

REACTIONS (2)
  - Product tampering [None]
  - Drug effect decreased [None]

NARRATIVE: CASE EVENT DATE: 20160308
